FAERS Safety Report 4318118-0 (Version None)
Quarter: 2004Q1

REPORT INFORMATION
  Report Type: 
  Country: None (occurrence: None)
  Receive Date: 20040317
  Receipt Date: 20040202
  Transmission Date: 20041129
  Serious: Yes (Hospitalization)
  Sender: FDA-Public Use
  Company Number: JP-ROCHE-358010

PATIENT
  Age: 3 Year
  Sex: Male
  Weight: 14.5 kg

DRUGS (8)
  1. TAMIFLU [Suspect]
     Route: 048
     Dates: start: 20040128, end: 20040130
  2. BROACT [Concomitant]
     Indication: BACTERIAL INFECTION
     Route: 042
     Dates: start: 20040128, end: 20040130
  3. MIDAZOLAM HCL [Concomitant]
     Indication: PROPHYLAXIS
     Route: 050
     Dates: start: 20040128, end: 20040207
  4. IMMUNE GLOBULIN INTRAVENOUS (HUMAN) [Concomitant]
     Route: 041
     Dates: start: 20040129, end: 20040131
  5. RIVOTRIL [Concomitant]
     Indication: EPILEPSY
     Route: 048
     Dates: start: 20031220, end: 20040228
  6. ALEVIATIN [Concomitant]
     Indication: EPILEPSY
     Route: 048
     Dates: start: 20031220, end: 20040228
  7. SELENICA-R [Concomitant]
     Indication: EPILEPSY
     Route: 048
     Dates: start: 20031220, end: 20040228
  8. GLYCEOL [Concomitant]
     Route: 041
     Dates: start: 20040201, end: 20040203

REACTIONS (4)
  - COAGULOPATHY [None]
  - HEPATIC FUNCTION ABNORMAL [None]
  - LIVER FUNCTION TEST ABNORMAL [None]
  - RENAL IMPAIRMENT [None]
